FAERS Safety Report 16750966 (Version 1)
Quarter: 2019Q3

REPORT INFORMATION
  Report Type: Spontaneous
  Country: CZ (occurrence: CZ)
  Receive Date: 20190828
  Receipt Date: 20190828
  Transmission Date: 20191005
  Serious: Yes (Life-Threatening, Hospitalization, Other)
  Sender: FDA-Public Use
  Company Number: CZ-PFIZER INC-2019365319

PATIENT
  Age: 66 Year
  Sex: Male

DRUGS (1)
  1. SUTENT [Suspect]
     Active Substance: SUNITINIB MALATE
     Indication: RENAL CANCER STAGE IV
     Dosage: UNK
     Dates: start: 20190327

REACTIONS (4)
  - Laryngeal oedema [Recovering/Resolving]
  - Dyspnoea [Recovering/Resolving]
  - Urinary tract infection [Unknown]
  - Oedema mouth [Recovering/Resolving]

NARRATIVE: CASE EVENT DATE: 20190806
